FAERS Safety Report 21412731 (Version 1)
Quarter: 2022Q4

REPORT INFORMATION
  Report Type: Spontaneous
  Country: US (occurrence: US)
  Receive Date: 20221005
  Receipt Date: 20221005
  Transmission Date: 20230112
  Serious: No
  Sender: FDA-Public Use
  Company Number: US-SA-SAC20220930000271

PATIENT
  Sex: Male
  Weight: 95 kg

DRUGS (2)
  1. DUPIXENT [Suspect]
     Active Substance: DUPILUMAB
     Indication: Dermatitis atopic
     Dosage: 300 MG, QOW
     Route: 058
     Dates: start: 20220316
  2. KETOCONAZOLE [Suspect]
     Active Substance: KETOCONAZOLE
     Indication: Staphylococcal infection
     Dosage: UNK

REACTIONS (6)
  - Eyelid margin crusting [Unknown]
  - Middle insomnia [Unknown]
  - Staphylococcal infection [Unknown]
  - Burning sensation [Unknown]
  - Rash [Unknown]
  - Therapeutic response decreased [Unknown]
